FAERS Safety Report 8064764-0 (Version None)
Quarter: 2012Q1

REPORT INFORMATION
  Report Type: 
  Country: None (occurrence: None)
  Receive Date: 20120124
  Receipt Date: 20120120
  Transmission Date: 20120608
  Serious: Yes (Death, Hospitalization)
  Sender: FDA-Public Use
  Company Number: DE-BRISTOL-MYERS SQUIBB COMPANY-16312225

PATIENT
  Age: 66 Year
  Sex: Female
  Weight: 75 kg

DRUGS (19)
  1. RAMIPRIL [Concomitant]
  2. TORSEMIDE [Concomitant]
     Dates: start: 20101229
  3. ZOPICLON [Concomitant]
     Dates: start: 20101229
  4. CISPLATIN [Suspect]
     Indication: NON-SMALL CELL LUNG CANCER
     Route: 065
     Dates: start: 20101202
  5. PRAVASTATIN [Concomitant]
  6. BISOPROLOL [Concomitant]
  7. FOLSAN [Concomitant]
     Dates: start: 20101228
  8. TORSEMIDE [Concomitant]
     Dates: start: 20101228
  9. FUROSEMIDE [Concomitant]
     Dates: start: 20101229
  10. ACETYLSALICYLIC ACID SRT [Concomitant]
     Dates: start: 20090831
  11. METOPROLOL [Concomitant]
     Dates: start: 20101212
  12. PRASUGREL [Concomitant]
     Dates: start: 20101228
  13. NALOXONE [Concomitant]
  14. ACETYLCYSTEINE [Concomitant]
     Dates: start: 20101228
  15. LIQUAEMIN INJ [Concomitant]
     Dates: start: 20101228
  16. PEMETREXED DISODIUM [Suspect]
     Indication: NON-SMALL CELL LUNG CANCER
     Route: 065
     Dates: start: 20101202, end: 20101202
  17. FLUCONAZOLE [Concomitant]
     Dates: start: 20110125
  18. DEXAMETHASONE TAB [Concomitant]
     Dates: start: 20101228
  19. CODEINE PHOSPHATE [Concomitant]
     Dates: start: 20101229

REACTIONS (1)
  - RENAL FAILURE [None]
